FAERS Safety Report 5573028-6 (Version None)
Quarter: 2007Q4

REPORT INFORMATION
  Report Type: 
  Country: None (occurrence: None)
  Receive Date: 20071224
  Receipt Date: 20071122
  Transmission Date: 20080405
  Serious: No
  Sender: FDA-Public Use
  Company Number: VE-AVENTIS-200721487GDDC

PATIENT
  Age: 24 Year
  Sex: Female

DRUGS (1)
  1. ARAVA [Suspect]
     Indication: RHEUMATOID ARTHRITIS
     Route: 048

REACTIONS (1)
  - DRUG EXPOSURE DURING PREGNANCY [None]
